FAERS Safety Report 8452301-8 (Version None)
Quarter: 2012Q2

REPORT INFORMATION
  Report Type: 
  Country: None (occurrence: None)
  Receive Date: 20120620
  Receipt Date: 20120614
  Transmission Date: 20120825
  Serious: Yes (Hospitalization)
  Sender: FDA-Public Use
  Company Number: ES-ELI_LILLY_AND_COMPANY-ES201206005024

PATIENT
  Sex: Female

DRUGS (2)
  1. ORAL ANTIDIABETICS [Concomitant]
     Dosage: UNK, UNKNOWN
     Route: 048
  2. FORTEO [Suspect]
     Dosage: UNK, UNKNOWN
     Route: 065

REACTIONS (1)
  - DIABETES MELLITUS INADEQUATE CONTROL [None]
